FAERS Safety Report 9797791 (Version 1)
Quarter: 2014Q1

REPORT INFORMATION
  Report Type: Spontaneous
  Country: US (occurrence: US)
  Receive Date: 20140106
  Receipt Date: 20140106
  Transmission Date: 20141002
  Serious: Yes (Other)
  Sender: FDA-Public Use
  Company Number: US-TARO PHARMACEUTICALS U.S.A., INC-2013SUN05320

PATIENT
  Age: 6 Year
  Sex: 0

DRUGS (4)
  1. IMIQUIMOD CREAM, 5% [Suspect]
     Indication: SKIN PAPILLOMA
     Dosage: UNK, QD
     Route: 061
  2. CANDIDA ANTIGEN [Concomitant]
     Dosage: 3 INJECTIONS
     Route: 065
  3. TRICHOPHYTON ANTIGEN [Concomitant]
     Indication: SKIN PAPILLOMA
     Dosage: 3 INJECTIONS
  4. LIQUID NITROGEN [Concomitant]
     Indication: SKIN PAPILLOMA

REACTIONS (2)
  - Guttate psoriasis [Unknown]
  - Off label use [Unknown]
